FAERS Safety Report 15567230 (Version 2)
Quarter: 2018Q4

REPORT INFORMATION
  Report Type: Report from Study
  Country: US (occurrence: US)
  Receive Date: 20181030
  Receipt Date: 20181121
  Transmission Date: 20190205
  Serious: Yes (Death, Hospitalization, Other)
  Sender: FDA-Public Use
  Company Number: US-ASTRAZENECA-2018SF39942

PATIENT
  Age: 950 Month
  Sex: Female

DRUGS (2)
  1. TAGRISSO [Suspect]
     Active Substance: OSIMERTINIB
     Indication: LUNG NEOPLASM MALIGNANT
     Route: 048
     Dates: start: 2018
  2. AMIODARONE [Concomitant]
     Active Substance: AMIODARONE
     Dates: start: 20181004

REACTIONS (4)
  - Colonic abscess [Not Recovered/Not Resolved]
  - Diverticulitis [Fatal]
  - Respiratory distress [Unknown]
  - Arrhythmia [Unknown]

NARRATIVE: CASE EVENT DATE: 201809
